FAERS Safety Report 7823945-9 (Version None)
Quarter: 2011Q4

REPORT INFORMATION
  Report Type: 
  Country: None (occurrence: None)
  Receive Date: 20111019
  Receipt Date: 20111012
  Transmission Date: 20120403
  Serious: Yes (Hospitalization)
  Sender: FDA-Public Use
  Company Number: DE-ASTRAZENECA-2011SE43852

PATIENT
  Age: 29478 Day
  Sex: Male
  Weight: 72.2 kg

DRUGS (7)
  1. ENALAPRIL MALEATE [Concomitant]
     Route: 048
  2. ASPIRIN [Concomitant]
     Route: 048
  3. SIMVASTATIN [Concomitant]
     Route: 048
  4. BISOPROLOL [Concomitant]
     Route: 048
  5. PANTOPRAZOLE [Concomitant]
     Route: 048
  6. IRESSA [Suspect]
     Indication: NON-SMALL CELL LUNG CANCER
     Route: 048
     Dates: start: 20101014
  7. AMLODIPINE [Concomitant]
     Route: 048

REACTIONS (2)
  - SKIN NECROSIS [None]
  - CEREBROVASCULAR ACCIDENT [None]
